FAERS Safety Report 9445655 (Version 2)
Quarter: 2013Q3

REPORT INFORMATION
  Report Type: Spontaneous
  Country: US (occurrence: US)
  Receive Date: 20130807
  Receipt Date: 20130820
  Transmission Date: 20140515
  Serious: Yes (Other)
  Sender: FDA-Public Use
  Company Number: US-PFIZER INC-2013102170

PATIENT
  Age: 71 Year
  Sex: Female

DRUGS (3)
  1. LYRICA [Suspect]
     Dosage: 50 MG, 2 CAPSULES 3 TIMES A DAY
  2. ALPRAZOLAM [Concomitant]
     Dosage: 0.5 MG, 4X/DAY
  3. TOPIRAMATE [Concomitant]
     Dosage: 50 MG, BEFORE BED, ONCE A DAY

REACTIONS (1)
  - Blindness [Unknown]
